FAERS Safety Report 8842450 (Version 1)
Quarter: 2012Q4

REPORT INFORMATION
  Report Type: 
  Country: JP (occurrence: JP)
  Receive Date: 20121016
  Receipt Date: 20121016
  Transmission Date: 20130627
  Serious: Yes (Hospitalization)
  Sender: FDA-Public Use
  Company Number: JP-ASTRAZENECA-2012SE76639

PATIENT
  Age: 26 Year
  Sex: Female
  Weight: 59 kg

DRUGS (13)
  1. DIPRIVAN [Suspect]
     Indication: GENERAL ANAESTHESIA
     Dosage: Dose unknown
     Route: 042
  2. REMIFENTANIL HYDROCHLORIDE [Suspect]
     Indication: INDUCTION AND MAINTENANCE OF ANAESTHESIA
     Dosage: Dose unknown
     Route: 042
  3. ROCURONIUM BROMIDE [Suspect]
     Indication: INDUCTION AND MAINTENANCE OF ANAESTHESIA
     Dosage: Dose unknown
     Route: 042
  4. MIDAZOLAM [Concomitant]
     Route: 042
  5. HYDROXYZINE HYDROCHLORIDE [Concomitant]
     Indication: SEDATION
     Route: 042
  6. PENTAZOCINE [Concomitant]
     Indication: SEDATION
     Route: 042
  7. ARIPIPRAZOLE [Concomitant]
     Dosage: Dose unknown
     Route: 065
  8. BIPERIDEN HYDROCHLORIDE [Concomitant]
     Dosage: Dose unknown
     Route: 065
  9. BRONCHODILATORS [Concomitant]
     Dosage: Dose unknown
     Route: 065
  10. CARBAMAZEPINE [Concomitant]
     Dosage: Dose unknown
     Route: 065
  11. SODIUM VALPROATE [Concomitant]
     Dosage: Dose unknown
     Route: 065
  12. PROMETHAZINE HYDROCHLORIDE [Concomitant]
     Dosage: Dose unknown
     Route: 065
  13. LEVOMEPROMAZINE MALEATE [Concomitant]
     Dosage: Dose unknown
     Route: 065

REACTIONS (1)
  - Delirium [Recovered/Resolved]
